FAERS Safety Report 16647371 (Version 1)
Quarter: 2019Q3

REPORT INFORMATION
  Report Type: Spontaneous
  Country: NL (occurrence: NL)
  Receive Date: 20190730
  Receipt Date: 20190730
  Transmission Date: 20191004
  Serious: Yes (Life-Threatening, Other)
  Sender: FDA-Public Use
  Company Number: NL-JNJFOC-20190728432

PATIENT
  Sex: Male
  Weight: 87 kg

DRUGS (4)
  1. REZOLSTA [Suspect]
     Active Substance: COBICISTAT\DARUNAVIR ETHANOLATE
     Indication: HIV INFECTION
     Dosage: 800/150 MILLIGRAM; DAILY BOTH MEDICINES, IF NECESSARY BUDESONIDE, WHETHER OR NOT IN BUDESONIDE W/FOR
     Route: 048
     Dates: start: 20190201
  2. TIVICAY [Suspect]
     Active Substance: DOLUTEGRAVIR SODIUM
     Indication: HIV INFECTION
     Dosage: DAILY BOTH MEDICINES
     Route: 065
     Dates: start: 20190201
  3. BUDESONIDE. [Suspect]
     Active Substance: BUDESONIDE
     Indication: CHRONIC OBSTRUCTIVE PULMONARY DISEASE
     Route: 065
     Dates: start: 20190201
  4. SYMBICORT [Concomitant]
     Active Substance: BUDESONIDE\FORMOTEROL FUMARATE DIHYDRATE
     Route: 065

REACTIONS (2)
  - Nervous system disorder [Recovered/Resolved]
  - Haematospermia [Recovered/Resolved]
